FAERS Safety Report 19096507 (Version 3)
Quarter: 2021Q3

REPORT INFORMATION
  Report Type: Spontaneous
  Country: US (occurrence: US)
  Receive Date: 20210406
  Receipt Date: 20210802
  Transmission Date: 20211014
  Serious: No
  Sender: FDA-Public Use
  Company Number: US-GLAXOSMITHKLINE-US2021AMR073734

PATIENT
  Sex: Female

DRUGS (2)
  1. ZEJULA [Suspect]
     Active Substance: NIRAPARIB
     Dosage: 200 MG, QD
  2. ZEJULA [Suspect]
     Active Substance: NIRAPARIB
     Indication: OVARIAN CANCER
     Dosage: 200 MG, QD (100MG X 2 CAPSULES)
     Dates: start: 20210324

REACTIONS (5)
  - Blood pressure increased [Unknown]
  - Decreased appetite [Unknown]
  - Nausea [Unknown]
  - Blood count abnormal [Unknown]
  - Product dose omission issue [Unknown]
